FAERS Safety Report 9222172 (Version 1)
Quarter: 2013Q2

REPORT INFORMATION
  Report Type: Spontaneous
  Country: US (occurrence: None)
  Receive Date: 20130408
  Receipt Date: 20130408
  Transmission Date: 20140414
  Serious: Yes (Hospitalization)
  Sender: FDA-Public Use
  Company Number: ACO_35233_2013

PATIENT
  Age: 49 Year
  Sex: Female
  Weight: 61.2 kg

DRUGS (11)
  1. AMPYRA [Suspect]
     Indication: PRODUCT USED FOR UNKNOWN INDICATION
  2. BETASERON [Suspect]
     Indication: PRODUCT USED FOR UNKNOWN INDICATION
  3. TYSABRI (NATALIZUMAB) [Concomitant]
  4. CYMBALTA (DULOXETINE HYDROCHLORIDE) [Concomitant]
  5. VITAMIN D (VITAMIN D) [Concomitant]
  6. DITROPAN XL (OXYBUTYNIN HYDROCHLORIDE) [Concomitant]
  7. ATENOLOL (ATENOLOL) [Concomitant]
  8. PROVIGIL (MODAFINIL) [Concomitant]
  9. MULTIVITAMIN (VITAMIN NOS) [Concomitant]
  10. FISH OIL (FISH OIL) [Concomitant]
  11. BACLOFEN (BACLOFEN) (BACLOFEN) [Concomitant]

REACTIONS (1)
  - Injection site infection [None]
